FAERS Safety Report 8382227-X (Version None)
Quarter: 2012Q2

REPORT INFORMATION
  Report Type: 
  Country: None (occurrence: None)
  Receive Date: 20120524
  Receipt Date: 20120521
  Transmission Date: 20120825
  Serious: Yes (Other)
  Sender: FDA-Public Use
  Company Number: US-PFIZER INC-2012109203

PATIENT
  Sex: Female
  Weight: 90.703 kg

DRUGS (8)
  1. LORATADINE [Concomitant]
     Dosage: 10 MG, 1X/DAY
  2. CHANTIX [Suspect]
     Indication: SMOKING CESSATION THERAPY
     Dosage: 0.5 MG, 1X/DAY
     Route: 048
     Dates: start: 20120206, end: 20120101
  3. FENOFIBRATE [Concomitant]
     Dosage: 160 MG, 1X/DAY
  4. CHANTIX [Suspect]
     Dosage: 1 MG, 2X/DAY
     Route: 048
     Dates: start: 20120101, end: 20120401
  5. PRAMIPEXOLE [Concomitant]
     Dosage: 0.5 MG, UNK
  6. COUMADIN [Concomitant]
     Dosage: 2.5 MG TWO DAYS IN A WEEK (MONDAY AND FRIDAY) AND 7.5MG ON REMAINING 5 DAYS IN A WEEK
  7. CRESTOR [Concomitant]
     Dosage: 40 MG, 1X/DAY
  8. OXYBUTYNIN [Concomitant]
     Dosage: 5 MG, 2X/DAY

REACTIONS (9)
  - MIDDLE INSOMNIA [None]
  - ANXIETY [None]
  - NIGHTMARE [None]
  - ABNORMAL DREAMS [None]
  - DEPRESSION [None]
  - TOBACCO USER [None]
  - DRUG INEFFECTIVE [None]
  - NAUSEA [None]
  - SUICIDAL IDEATION [None]
